FAERS Safety Report 6894883-3 (Version None)
Quarter: 2010Q3

REPORT INFORMATION
  Report Type: 
  Country: None (occurrence: None)
  Receive Date: 20100730
  Receipt Date: 20100730
  Transmission Date: 20110219
  Serious: Yes (Hospitalization)
  Sender: FDA-Public Use
  Company Number: None

PATIENT
  Sex: Female
  Weight: 74.8435 kg

DRUGS (1)
  1. XELODA [Suspect]
     Indication: NEOPLASM MALIGNANT
     Dosage: 4 DAILY 2 MORNING 2 NIGHT
     Dates: start: 20100623, end: 20100702

REACTIONS (2)
  - DIARRHOEA [None]
  - VOMITING [None]
